FAERS Safety Report 23402148 (Version 7)
Quarter: 2024Q2

REPORT INFORMATION
  Report Type: Spontaneous
  Country: AU (occurrence: AU)
  Receive Date: 20240115
  Receipt Date: 20240412
  Transmission Date: 20240715
  Serious: Yes (Death, Hospitalization, Other)
  Sender: FDA-Public Use
  Company Number: AU-BRISTOL-MYERS SQUIBB COMPANY-2024-006606

PATIENT
  Age: 77 Year
  Sex: Female
  Weight: 103 kg

DRUGS (2)
  1. APIXABAN [Suspect]
     Active Substance: APIXABAN
     Indication: Jugular vein thrombosis
     Route: 048
     Dates: start: 20230906
  2. AVELUMAB [Suspect]
     Active Substance: AVELUMAB
     Indication: Transitional cell carcinoma
     Route: 042
     Dates: start: 20230404, end: 20231031

REACTIONS (2)
  - Urosepsis [Fatal]
  - Off label use [Unknown]

NARRATIVE: CASE EVENT DATE: 20231029
